FAERS Safety Report 25173344 (Version 1)
Quarter: 2025Q2

REPORT INFORMATION
  Report Type: Report from Study
  Country: CA (occurrence: CA)
  Receive Date: 20250408
  Receipt Date: 20250408
  Transmission Date: 20250716
  Serious: Yes (Other)
  Sender: TAKEDA
  Company Number: CA-TAKEDA-2025TUS033878

PATIENT
  Sex: Female

DRUGS (8)
  1. VEDOLIZUMAB [Suspect]
     Active Substance: VEDOLIZUMAB
     Indication: Colitis ulcerative
  2. HUMIRA [Concomitant]
     Active Substance: ADALIMUMAB
     Dosage: UNK UNK, Q2WEEKS
     Dates: start: 202309
  3. ABRILADA [Concomitant]
     Active Substance: ADALIMUMAB-AFZB
     Dosage: UNK UNK, Q2WEEKS
     Dates: start: 202309
  4. HYRIMOZ [Concomitant]
     Active Substance: ADALIMUMAB-ADAZ
     Dosage: UNK UNK, Q2WEEKS
     Dates: start: 202309
  5. HULIO [Concomitant]
     Active Substance: ADALIMUMAB-FKJP
     Dosage: UNK UNK, Q2WEEKS
     Dates: start: 202309
  6. HADLIMA [Concomitant]
     Active Substance: ADALIMUMAB-BWWD
     Dosage: UNK UNK, Q2WEEKS
     Dates: start: 202309
  7. ADALIMUMAB [Concomitant]
     Active Substance: ADALIMUMAB
     Dosage: UNK UNK, Q2WEEKS
     Dates: start: 202309
  8. IDACIO [Concomitant]
     Active Substance: ADALIMUMAB-AACF
     Dosage: UNK UNK, Q2WEEKS
     Dates: start: 202309

REACTIONS (1)
  - Lower respiratory tract infection [Unknown]
